FAERS Safety Report 9356211 (Version 1)
Quarter: 2013Q2

REPORT INFORMATION
  Report Type: Spontaneous
  Country: FR (occurrence: FR)
  Receive Date: 20130619
  Receipt Date: 20130619
  Transmission Date: 20140414
  Serious: Yes (Life-Threatening)
  Sender: FDA-Public Use
  Company Number: FR-GLAXOSMITHKLINE-B0898770A

PATIENT
  Age: 37 Year
  Sex: Female

DRUGS (14)
  1. ZOPHREN [Suspect]
     Indication: PREMEDICATION
     Route: 065
     Dates: start: 20130521, end: 20130524
  2. SODIUM BICARBONATE [Suspect]
     Indication: PRODUCT USED FOR UNKNOWN INDICATION
     Route: 002
     Dates: start: 20130523
  3. FILGRASTIM [Suspect]
     Dosage: 1INJ PER DAY
     Route: 065
     Dates: start: 20130523
  4. UROMITEXAN [Suspect]
     Indication: PROPHYLAXIS
     Route: 065
     Dates: start: 20130521
  5. DOXORUBICIN [Suspect]
     Indication: OSTEOSARCOMA
     Route: 042
     Dates: start: 20130521, end: 20130521
  6. CISPLATIN [Suspect]
     Indication: OSTEOSARCOMA
     Route: 042
     Dates: start: 20130521, end: 20130521
  7. HOLOXAN [Suspect]
     Indication: OSTEOSARCOMA
     Route: 042
     Dates: start: 20130522, end: 20130522
  8. METHYLPREDNISOLONE [Suspect]
     Indication: PREMEDICATION
     Route: 065
     Dates: start: 20130521
  9. LYSANXIA [Suspect]
     Indication: PREMEDICATION
     Route: 048
     Dates: start: 20130521
  10. SOLUPRED [Suspect]
     Dosage: 60MG PER DAY
     Route: 048
     Dates: start: 20130523, end: 20130525
  11. HYDRATION [Concomitant]
     Dates: start: 20130521
  12. PACKED RED BLOOD CELLS [Concomitant]
     Dosage: 1UNIT SINGLE DOSE
     Dates: start: 20130523, end: 20130523
  13. PRIMPERAN [Concomitant]
     Indication: NAUSEA
     Dates: start: 20130523
  14. ARANESP [Concomitant]
     Dosage: 150MCG WEEKLY
     Dates: start: 20130523

REACTIONS (8)
  - Neutropenia [Unknown]
  - Leukopenia [Unknown]
  - Pyrexia [Unknown]
  - Anaemia [Unknown]
  - Thrombocytopenia [Unknown]
  - Diarrhoea [Unknown]
  - Hypokalaemia [Unknown]
  - Electrocardiogram ST segment depression [Unknown]
